FAERS Safety Report 9809736 (Version 2)
Quarter: 2014Q1

REPORT INFORMATION
  Report Type: Spontaneous
  Country: US (occurrence: US)
  Receive Date: 20140110
  Receipt Date: 20140110
  Transmission Date: 20141002
  Serious: Yes (Death)
  Sender: FDA-Public Use
  Company Number: US-SANOFI-AVENTIS-2012SA048130

PATIENT
  Age: 64 Year
  Sex: Female
  Weight: 45 kg

DRUGS (20)
  1. PLAVIX [Suspect]
     Indication: ACUTE CORONARY SYNDROME
     Route: 048
     Dates: start: 20120702, end: 20120702
  2. ASPIRIN [Suspect]
     Indication: ACUTE CORONARY SYNDROME
     Route: 048
     Dates: start: 2001, end: 20120702
  3. OTAMIXABAN [Suspect]
     Indication: ACUTE CORONARY SYNDROME
     Route: 042
     Dates: start: 20120702, end: 20120703
  4. HEPARIN [Concomitant]
     Dosage: DOSE:3000 UNIT(S)
     Route: 040
     Dates: start: 20120701, end: 20120701
  5. HEPARIN [Concomitant]
     Dosage: DOSE: 7 ML/H.
     Route: 041
     Dates: start: 20120701, end: 20120702
  6. ANASTROZOLE [Concomitant]
     Dates: start: 2011, end: 20120702
  7. TENORMIN [Concomitant]
     Dates: start: 20120702, end: 20120702
  8. TENORETIC [Concomitant]
     Dates: start: 2001, end: 20120702
  9. TENORETIC [Concomitant]
     Dates: start: 20120702, end: 20120702
  10. ANCEF [Concomitant]
     Dates: start: 20120702, end: 20120703
  11. CELEXA [Concomitant]
     Dates: start: 2002, end: 20120702
  12. CATAPRES /UNK/ [Concomitant]
     Dates: start: 2001, end: 20120702
  13. COZAAR [Concomitant]
     Dates: start: 2008, end: 20120702
  14. MORPHINE [Concomitant]
     Dates: start: 20120701, end: 20120701
  15. NITROSTAT [Concomitant]
     Dates: start: 20120701, end: 20120701
  16. GLYCERYL TRINITRATE [Concomitant]
     Dates: start: 20120701, end: 20120703
  17. TYLENOL [Concomitant]
     Dates: start: 20120702, end: 20120702
  18. LIDOCAINE [Concomitant]
     Dates: start: 20120702, end: 20120702
  19. ATIVAN [Concomitant]
     Dates: start: 20120702, end: 20120702
  20. NOREPINEPHRINE [Concomitant]
     Dates: start: 20120701, end: 20120703

REACTIONS (2)
  - Catheter site haematoma [Fatal]
  - Vascular pseudoaneurysm [Fatal]
